FAERS Safety Report 17667431 (Version 1)
Quarter: 2020Q2

REPORT INFORMATION
  Report Type: Spontaneous
  Country: FR (occurrence: FR)
  Receive Date: 20200414
  Receipt Date: 20200414
  Transmission Date: 20200713
  Serious: Yes (Death)
  Sender: FDA-Public Use
  Company Number: NVSC2020FR099598

PATIENT
  Age: 75 Year
  Sex: Male

DRUGS (2)
  1. LEVACT [Suspect]
     Active Substance: BENDAMUSTINE HYDROCHLORIDE
     Indication: B-CELL SMALL LYMPHOCYTIC LYMPHOMA
     Dosage: 127.5 MG, CYCLIC
     Route: 042
     Dates: start: 20130305, end: 20130727
  2. ARZERRA [Suspect]
     Active Substance: OFATUMUMAB
     Indication: B-CELL SMALL LYMPHOCYTIC LYMPHOMA
     Dosage: 1000 MG, CYCLIC (PREPHASE ON 25 FEB 2013 CYCLE 1 INFERRED ON 04 MAR 2013)
     Route: 042
     Dates: start: 20130225, end: 20130725

REACTIONS (1)
  - Acute myeloid leukaemia refractory [Fatal]

NARRATIVE: CASE EVENT DATE: 20131009
